FAERS Safety Report 25748994 (Version 2)
Quarter: 2025Q3

REPORT INFORMATION
  Report Type: Report from Study
  Country: US (occurrence: US)
  Receive Date: 20250902
  Receipt Date: 20250913
  Transmission Date: 20251020
  Serious: Yes (Other)
  Sender: AUROBINDO
  Company Number: US-AUROBINDO-AUR-APL-2025-044226

PATIENT
  Age: 3 Year
  Sex: Female

DRUGS (5)
  1. TADALAFIL [Suspect]
     Active Substance: TADALAFIL
     Indication: Mitochondrial encephalomyopathy
     Route: 048
  2. TADALAFIL [Suspect]
     Active Substance: TADALAFIL
     Indication: Methylmalonic acidaemia
  3. TADALAFIL [Suspect]
     Active Substance: TADALAFIL
     Indication: Deafness
  4. TADALAFIL [Suspect]
     Active Substance: TADALAFIL
     Indication: Encephalopathy
  5. TADALAFIL [Suspect]
     Active Substance: TADALAFIL
     Indication: Liver disorder

REACTIONS (1)
  - Off label use [Unknown]
